FAERS Safety Report 4343118-4 (Version None)
Quarter: 2004Q2

REPORT INFORMATION
  Report Type: 
  Country: None (occurrence: None)
  Receive Date: 20040421
  Receipt Date: 20040204
  Transmission Date: 20050107
  Serious: Yes (Hospitalization)
  Sender: FDA-Public Use
  Company Number: JP-GLAXOSMITHKLINE-B0322362A

PATIENT
  Age: 87 Year
  Sex: Female

DRUGS (9)
  1. ZOVIRAX [Suspect]
     Indication: HERPES ZOSTER
     Dosage: 250MG PER DAY
     Route: 042
     Dates: start: 20040126, end: 20040131
  2. VALTREX [Suspect]
     Indication: HERPES ZOSTER
     Dosage: 1000MG THREE TIMES PER DAY
     Route: 048
     Dates: start: 20040126, end: 20040126
  3. PRANOPROFEN [Concomitant]
     Indication: HERPES ZOSTER
     Dosage: 75MG THREE TIMES PER DAY
     Route: 048
     Dates: end: 20040130
  4. ARASENA-A [Concomitant]
     Indication: HERPES ZOSTER
     Route: 061
     Dates: start: 20040126, end: 20040130
  5. HALCION [Concomitant]
     Dosage: .25MG PER DAY
     Route: 048
     Dates: end: 20040130
  6. COSMEGEN [Concomitant]
     Dosage: .5MG PER DAY
     Route: 048
  7. HECT M [Concomitant]
     Route: 048
  8. BLOPRESS [Concomitant]
     Dosage: 4MG PER DAY
     Route: 048
     Dates: end: 20040130
  9. ACTINOMYCIN D [Concomitant]
     Route: 048
     Dates: end: 20040130

REACTIONS (10)
  - ABASIA [None]
  - ATAXIA [None]
  - BLOOD CREATININE INCREASED [None]
  - BLOOD UREA INCREASED [None]
  - CONDITION AGGRAVATED [None]
  - DEPRESSED LEVEL OF CONSCIOUSNESS [None]
  - DISTURBANCE IN ATTENTION [None]
  - HEADACHE [None]
  - NAUSEA [None]
  - RENAL FAILURE ACUTE [None]
